FAERS Safety Report 9450130 (Version 2)
Quarter: 2013Q3

REPORT INFORMATION
  Report Type: Spontaneous
  Country: BR (occurrence: BR)
  Receive Date: 20130809
  Receipt Date: 20130916
  Transmission Date: 20140515
  Serious: No
  Sender: FDA-Public Use
  Company Number: BR-NOVOPROD-384594

PATIENT
  Age: 78 Year
  Sex: Male
  Weight: 94 kg

DRUGS (15)
  1. NOVOLIN N [Suspect]
     Indication: TYPE 2 DIABETES MELLITUS
     Dosage: 30 IU, QD
     Route: 058
     Dates: start: 2003
  2. NOVOMIX 30 FLEXPEN [Suspect]
     Indication: TYPE 2 DIABETES MELLITUS
     Dosage: 12 IU, QD
     Route: 058
     Dates: start: 2005
  3. ANCORON [Concomitant]
     Indication: CARDIAC DISORDER
     Dosage: 1 TAB, QD
     Route: 048
  4. TIMOLOL [Concomitant]
     Indication: GLAUCOMA
     Dosage: 1 DROP, QD
  5. HUMALOG [Concomitant]
     Indication: TYPE 2 DIABETES MELLITUS
     Dosage: 10 IU, QD
     Route: 058
  6. PURAN T4 [Concomitant]
     Indication: HYPOTHYROIDISM
     Dosage: 2 TAB, QD (25 MCG + 112 MCG)
     Route: 048
  7. LATANOPROST [Concomitant]
     Indication: GLAUCOMA
     Dosage: 1 DROP, QD
  8. DIOVAN AMLO [Concomitant]
     Indication: HYPERTENSION
     Dosage: 1 TAB, QD (DIOVAN AMLO FIX 160 5 MG)
     Route: 048
  9. ALLOPURINOL [Concomitant]
     Indication: BLOOD URIC ACID ABNORMAL
     Dosage: 1 TAB, QD
     Route: 048
  10. LASIX                              /00032601/ [Concomitant]
     Indication: DIURETIC THERAPY
     Dosage: 1 TAB, QD
     Route: 048
  11. LUDIOMIL                           /00331902/ [Concomitant]
     Indication: DEPRESSION
     Dosage: 25 MG, QD (TABLET)
     Route: 048
     Dates: start: 1999
  12. OMEPRAZOLE [Concomitant]
     Indication: GASTRIC DISORDER
     Dosage: 40 MG, QD  (TAB)
     Route: 048
  13. DRAMIN B6 [Concomitant]
     Indication: NAUSEA
     Dosage: 3 TAB, QD
     Route: 048
  14. AAS [Concomitant]
     Indication: PROPHYLAXIS
     Dosage: 100 MG, QD (TAB)
     Route: 048
  15. DORZOLAMIDE [Concomitant]
     Indication: GLAUCOMA
     Dosage: 4 DROPS (OCULAR)

REACTIONS (1)
  - Device issue [Unknown]
